FAERS Safety Report 8127017-8 (Version None)
Quarter: 2012Q1

REPORT INFORMATION
  Report Type: 
  Country: None (occurrence: None)
  Receive Date: 20120210
  Receipt Date: 20120131
  Transmission Date: 20120608
  Serious: Yes (Hospitalization, Other)
  Sender: FDA-Public Use
  Company Number: US-JNJFOC-20120200263

PATIENT
  Sex: Female
  Weight: 93.44 kg

DRUGS (8)
  1. LUNESTA [Concomitant]
     Indication: SLEEP DISORDER
     Dosage: AS NEEDED
     Route: 048
     Dates: start: 20040101
  2. LEXAPRO [Concomitant]
     Indication: DEPRESSION
     Route: 048
     Dates: start: 20070101
  3. REMICADE [Suspect]
     Indication: COLITIS ULCERATIVE
     Route: 042
     Dates: start: 20110301
  4. WELLBUTRIN [Concomitant]
     Indication: DEPRESSION
     Route: 048
     Dates: start: 20040101, end: 20070101
  5. REMICADE [Suspect]
     Route: 042
     Dates: start: 20100101, end: 20110301
  6. SYNTHROID [Concomitant]
     Indication: THYROID DISORDER
     Dosage: DOSE: 75 MCG
     Route: 048
  7. MERCAPTOPURINE [Concomitant]
     Route: 048
     Dates: start: 20090101
  8. FLUTICASONE PROPIONATE [Concomitant]
     Indication: SINUSITIS
     Route: 065
     Dates: start: 20070101

REACTIONS (8)
  - VITAMIN D DECREASED [None]
  - BLOOD IRON DECREASED [None]
  - BLOOD FOLATE DECREASED [None]
  - DIARRHOEA [None]
  - ASTHMA [None]
  - DEHYDRATION [None]
  - LOWER RESPIRATORY TRACT INFECTION [None]
  - ALOPECIA [None]
